FAERS Safety Report 6448002-8 (Version None)
Quarter: 2009Q4

REPORT INFORMATION
  Report Type: 
  Country: None (occurrence: None)
  Receive Date: 20091120
  Receipt Date: 20091109
  Transmission Date: 20100525
  Serious: Yes (Other)
  Sender: FDA-Public Use
  Company Number: SK-ROCHE-664053

PATIENT
  Age: 62 Year
  Sex: Male
  Weight: 73 kg

DRUGS (4)
  1. MYCOPHENOLATE MOFETIL [Suspect]
     Route: 065
  2. CYCLOSPORINE [Suspect]
     Route: 065
  3. PREDNISONE [Suspect]
     Route: 065
  4. TACROLIMUS [Suspect]
     Route: 065

REACTIONS (4)
  - ASCITES [None]
  - HEPATITIS C [None]
  - PANCYTOPENIA [None]
  - PORTAL HYPERTENSION [None]
